FAERS Safety Report 5601674-X (Version None)
Quarter: 2008Q1

REPORT INFORMATION
  Report Type: 
  Country: None (occurrence: None)
  Receive Date: 20080124
  Receipt Date: 20071217
  Transmission Date: 20080703
  Serious: Yes (Other)
  Sender: FDA-Public Use
  Company Number: FR-GILEAD-2007-0014680

PATIENT
  Sex: Female
  Weight: 93 kg

DRUGS (8)
  1. TRUVADA [Suspect]
     Indication: HIV INFECTION
     Route: 048
     Dates: start: 20061212, end: 20070604
  2. VIREAD [Suspect]
     Indication: HIV INFECTION
     Route: 048
     Dates: start: 20070604
  3. VIREAD [Suspect]
     Dates: end: 20061212
  4. EMTRIVA [Suspect]
     Indication: HIV INFECTION
     Dates: end: 20061212
  5. VIRAMUNE [Suspect]
     Indication: HIV INFECTION
     Route: 048
     Dates: start: 20061212, end: 20070604
  6. KALETRA [Concomitant]
     Indication: HIV INFECTION
     Route: 048
     Dates: start: 20070604
  7. RETROVIR [Concomitant]
     Indication: HIV INFECTION
     Dates: start: 20070604
  8. TARDYFERON B9 [Concomitant]

REACTIONS (2)
  - GENOTYPE DRUG RESISTANCE TEST POSITIVE [None]
  - PREGNANCY [None]
